FAERS Safety Report 15661173 (Version 1)
Quarter: 2018Q4

REPORT INFORMATION
  Report Type: Spontaneous
  Country: JP (occurrence: JP)
  Receive Date: 20181127
  Receipt Date: 20181127
  Transmission Date: 20190205
  Serious: Yes (Hospitalization, Other)
  Sender: FDA-Public Use
  Company Number: JP-SILVERGATE PHARMACEUTICALS, INC.-2018SIL00056

PATIENT
  Age: 73 Year
  Sex: Male

DRUGS (1)
  1. METHOTREXATE. [Suspect]
     Active Substance: METHOTREXATE
     Indication: RHEUMATOID ARTHRITIS
     Dosage: 6 TO 10 MG, 1X/WEEK
     Route: 065

REACTIONS (2)
  - Lumbar vertebral fracture [Unknown]
  - Lymphoproliferative disorder [Recovered/Resolved]
